FAERS Safety Report 17940294 (Version 1)
Quarter: 2020Q2

REPORT INFORMATION
  Report Type: Spontaneous
  Country: US (occurrence: US)
  Receive Date: 20200625
  Receipt Date: 20200625
  Transmission Date: 20200714
  Serious: Yes (Death, Disabling, Other)
  Sender: FDA-Public Use
  Company Number: US-SA-2020SA157406

PATIENT

DRUGS (1)
  1. GOLD BOND ORIGINAL STRENGTH POWDER [Suspect]
     Active Substance: MENTHOL\ZINC OXIDE

REACTIONS (12)
  - Lung neoplasm malignant [Fatal]
  - Condition aggravated [Fatal]
  - Loss of personal independence in daily activities [Unknown]
  - Exposure to chemical pollution [Fatal]
  - Pneumonitis [Fatal]
  - Anxiety [Unknown]
  - Exposure via partner [Fatal]
  - Respiratory failure [Fatal]
  - Pain [Unknown]
  - Occupational exposure to product [Fatal]
  - Exposure via father [Fatal]
  - Interstitial lung disease [Fatal]

NARRATIVE: CASE EVENT DATE: 20190712
